FAERS Safety Report 7509846-4 (Version None)
Quarter: 2011Q2

REPORT INFORMATION
  Report Type: 
  Country: None (occurrence: None)
  Receive Date: 20110527
  Receipt Date: 20110518
  Transmission Date: 20111010
  Serious: Yes (Life-Threatening, Hospitalization, Other)
  Sender: FDA-Public Use
  Company Number: B0690084A

PATIENT
  Age: 74 Year
  Sex: Male
  Weight: 72.1 kg

DRUGS (13)
  1. TENOFOVIR DISOPROXIL FUMARATE [Concomitant]
     Route: 048
     Dates: start: 20050922
  2. DOCUSATE [Concomitant]
     Route: 048
     Dates: start: 20101129
  3. SELZENTRY [Concomitant]
     Indication: HIV INFECTION
     Dosage: 300MG TWICE PER DAY
     Route: 048
     Dates: start: 20100928
  4. ZIDOVUDINE [Concomitant]
     Route: 048
     Dates: start: 20060414
  5. FLOMAX [Concomitant]
     Route: 048
     Dates: start: 20001201
  6. ACYCLOVIR [Concomitant]
     Route: 048
     Dates: start: 20050228
  7. MARAVIROC [Suspect]
     Indication: HIV INFECTION
     Dosage: 300MG TWICE PER DAY
     Route: 048
     Dates: start: 20050922, end: 20100927
  8. TOPROL-XL [Concomitant]
     Route: 048
     Dates: start: 20040120
  9. SENNA-MINT WAF [Concomitant]
     Route: 048
     Dates: start: 20101129
  10. RITONAVIR [Concomitant]
     Route: 048
     Dates: start: 20060505
  11. TIPRANAVIR [Concomitant]
     Route: 048
     Dates: start: 20060505
  12. MAVIK [Concomitant]
     Route: 048
     Dates: start: 20021201
  13. EMTRICITABINE [Concomitant]
     Route: 048
     Dates: start: 20050922

REACTIONS (1)
  - MANTLE CELL LYMPHOMA [None]
